FAERS Safety Report 16204214 (Version 1)
Quarter: 2019Q2

REPORT INFORMATION
  Report Type: Report from Study
  Country: PE (occurrence: PE)
  Receive Date: 20190416
  Receipt Date: 20190416
  Transmission Date: 20190711
  Serious: Yes (Other)
  Sender: FDA-Public Use
  Company Number: PE-SA-2019SA103553

PATIENT
  Age: 71 Year
  Sex: Female

DRUGS (4)
  1. CELECOXIB. [Concomitant]
     Active Substance: CELECOXIB
     Indication: ARTHRALGIA
     Dosage: UNK UNK, QD
     Route: 048
     Dates: start: 201903
  2. ORPHENADRINE [Concomitant]
     Active Substance: ORPHENADRINE
     Indication: ARTHRALGIA
     Dosage: UNK UNK, UNK (CONDITIONAL)
     Route: 048
  3. LEFLUNOMIDE. [Suspect]
     Active Substance: LEFLUNOMIDE
     Indication: RHEUMATOID ARTHRITIS
     Dosage: 20 MG, QD
     Route: 048
     Dates: start: 201803
  4. NAPROXEN. [Concomitant]
     Active Substance: NAPROXEN
     Indication: ARTHRALGIA
     Dosage: UNK UNK, QD
     Route: 048
     Dates: start: 2011

REACTIONS (7)
  - Osteochondrosis [Not Recovered/Not Resolved]
  - Arthralgia [Not Recovered/Not Resolved]
  - Chondromalacia [Not Recovered/Not Resolved]
  - Synovitis [Not Recovered/Not Resolved]
  - Osteonecrosis [Not Recovered/Not Resolved]
  - Subchondral insufficiency fracture [Not Recovered/Not Resolved]
  - Osteoarthritis [Not Recovered/Not Resolved]

NARRATIVE: CASE EVENT DATE: 201902
